FAERS Safety Report 16634136 (Version 2)
Quarter: 2020Q3

REPORT INFORMATION
  Report Type: Other
  Country: RO (occurrence: RO)
  Receive Date: 20190726
  Receipt Date: 20200825
  Transmission Date: 20201102
  Serious: No
  Sender: FDA-Public Use
  Company Number: RO-ROCHE-2359359

PATIENT
  Age: 63 Year
  Sex: Male

DRUGS (5)
  1. CAPECITABINE. [Suspect]
     Active Substance: CAPECITABINE
     Indication: NEUROENDOCRINE TUMOUR
     Dosage: PALLIATIVE CHEMOTHERAPY, CYCLICAL
     Route: 065
  2. OCTREOTIDE. [Concomitant]
     Active Substance: OCTREOTIDE
     Indication: ACROMEGALY
     Dosage: OCTREOTIDE LAR 20 MG/28D
  3. OXALIPLATIN. [Suspect]
     Active Substance: OXALIPLATIN
     Indication: NEUROENDOCRINE TUMOUR
     Dosage: PALLIATIVE CHEMOTHERAPY, CYCLICAL
     Route: 065
  4. OXALIPLATIN. [Suspect]
     Active Substance: OXALIPLATIN
     Indication: METASTASES TO LIVER
  5. CAPECITABINE. [Suspect]
     Active Substance: CAPECITABINE
     Indication: METASTASES TO LIVER

REACTIONS (2)
  - Therapy non-responder [Unknown]
  - Anaemia [Unknown]
